FAERS Safety Report 5637611-1 (Version None)
Quarter: 2008Q1

REPORT INFORMATION
  Report Type: 
  Country: None (occurrence: None)
  Receive Date: 20080225
  Receipt Date: 20080214
  Transmission Date: 20080703
  Serious: Yes (Hospitalization)
  Sender: FDA-Public Use
  Company Number: IT-SANOFI-SYNTHELABO-A06200800055

PATIENT
  Sex: Male

DRUGS (4)
  1. DIURESIX [Concomitant]
     Indication: DRUG USE FOR UNKNOWN INDICATION
     Dosage: UNK
     Route: 065
  2. COMBISARTAN [Suspect]
     Indication: HYPERTENSION
     Route: 048
     Dates: start: 20070622, end: 20080122
  3. ALLOPURINOL [Suspect]
     Indication: HYPERURICAEMIA
     Route: 048
     Dates: start: 20071216, end: 20080106
  4. XATRAL [Suspect]
     Indication: BENIGN PROSTATIC HYPERPLASIA
     Route: 048
     Dates: start: 20070617, end: 20080117

REACTIONS (1)
  - LICHENOID KERATOSIS [None]
